FAERS Safety Report 17798416 (Version 2)
Quarter: 2020Q2

REPORT INFORMATION
  Report Type: Report from Study
  Country: US (occurrence: US)
  Receive Date: 20200518
  Receipt Date: 20200527
  Transmission Date: 20200714
  Serious: Yes (Hospitalization)
  Sender: FDA-Public Use
  Company Number: US-JNJFOC-20200511256

PATIENT
  Age: 15 Year
  Sex: Female
  Weight: 55.3 kg

DRUGS (5)
  1. INFLIXIMAB, RECOMBINANT [Suspect]
     Active Substance: INFLIXIMAB
     Indication: INFLAMMATORY BOWEL DISEASE
     Route: 042
     Dates: start: 20140926, end: 20150506
  2. MERCAPTOPURINE. [Concomitant]
     Active Substance: MERCAPTOPURINE
  3. HUMIRA [Concomitant]
     Active Substance: ADALIMUMAB
     Dates: start: 20150513, end: 20171107
  4. HUMIRA [Concomitant]
     Active Substance: ADALIMUMAB
     Dates: start: 20181120
  5. INFLIXIMAB, RECOMBINANT [Suspect]
     Active Substance: INFLIXIMAB
     Route: 042
     Dates: start: 20171121, end: 20180831

REACTIONS (2)
  - Inflammatory bowel disease [Recovered/Resolved]
  - Photophobia [Recovered/Resolved]

NARRATIVE: CASE EVENT DATE: 20190107
